FAERS Safety Report 5038853-9 (Version None)
Quarter: 2006Q2

REPORT INFORMATION
  Report Type: 
  Country: None (occurrence: None)
  Receive Date: 20060627
  Receipt Date: 20060627
  Transmission Date: 20061013
  Serious: Yes (Hospitalization)
  Sender: FDA-Public Use
  Company Number: None

PATIENT
  Age: 55 Year
  Sex: Male
  Weight: 135.1719 kg

DRUGS (3)
  1. MECLIZINE [Suspect]
     Dosage: 25 MG PO Q8 HR
     Route: 048
  2. CYCLOBENZAPRINE HCL [Suspect]
     Dosage: 10 MG PO Q6 HR
     Route: 048
  3. LORTAB [Suspect]

REACTIONS (2)
  - DELIRIUM [None]
  - MENTAL STATUS CHANGES [None]
